FAERS Safety Report 8350830-9 (Version None)
Quarter: 2012Q2

REPORT INFORMATION
  Report Type: 
  Country: None (occurrence: None)
  Receive Date: 20120510
  Receipt Date: 20101101
  Transmission Date: 20120825
  Serious: No
  Sender: FDA-Public Use
  Company Number: US-TEVA-2010005713

PATIENT
  Age: 46 Year
  Sex: Female
  Weight: 49.032 kg

DRUGS (3)
  1. NUVIGIL [Suspect]
     Indication: SLEEP APNOEA SYNDROME
     Dosage: 250 MILLIGRAM;
     Route: 048
     Dates: start: 20090801
  2. NUVIGIL [Suspect]
     Dosage: 125 MILLIGRAM;
     Route: 048
  3. NUVIGIL [Suspect]
     Dosage: 250 MILLIGRAM;
     Route: 048

REACTIONS (2)
  - PSYCHOMOTOR HYPERACTIVITY [None]
  - DRUG INEFFECTIVE [None]
